FAERS Safety Report 19244991 (Version 6)
Quarter: 2023Q2

REPORT INFORMATION
  Report Type: Spontaneous
  Country: IN (occurrence: IN)
  Receive Date: 20210511
  Receipt Date: 20230412
  Transmission Date: 20230721
  Serious: Yes (Hospitalization, Other)
  Sender: FDA-Public Use
  Company Number: IN-PFIZER INC-2021117258

PATIENT
  Age: 64 Year
  Sex: Female
  Weight: 87 kg

DRUGS (8)
  1. PALBOCICLIB [Suspect]
     Active Substance: PALBOCICLIB
     Indication: Breast cancer metastatic
     Dosage: 125 MG, 1X/DAY
     Route: 048
     Dates: start: 20190809
  2. PALBOCICLIB [Suspect]
     Active Substance: PALBOCICLIB
     Dosage: 125 MG, CYCLIC: ONCE A DAY, X 3WEEKS THEN 1WEEK OFF
     Route: 048
     Dates: start: 20200917, end: 20210309
  3. PALBOCICLIB [Suspect]
     Active Substance: PALBOCICLIB
     Dosage: 100 MG
  4. PALBOCICLIB [Suspect]
     Active Substance: PALBOCICLIB
     Dosage: 75 MG, CYCLIC: ONCE A DAY, X 3WEEKS THEN 1WEEK OFF
  5. LETROZOLE [Concomitant]
     Active Substance: LETROZOLE
     Dosage: 2.5 MG, 1X/DAY
  6. AROMASIN [Concomitant]
     Active Substance: EXEMESTANE
     Dosage: UNK
  7. CALCIUM\CHOLECALCIFEROL [Concomitant]
     Active Substance: CALCIUM\CHOLECALCIFEROL
     Dosage: 120 MG, 1X/DAY
  8. ZOLEDRONIC ACID [Concomitant]
     Active Substance: ZOLEDRONIC ACID
     Dosage: 4 MG, CYCLIC: IN 100NS OVER 1 HOUR

REACTIONS (9)
  - COVID-19 [Recovered/Resolved]
  - Rash [Unknown]
  - Malaise [Unknown]
  - Unevaluable event [Unknown]
  - Dry skin [Unknown]
  - Neoplasm progression [Unknown]
  - Cough [Unknown]
  - Skin exfoliation [Unknown]
  - Skin toxicity [Unknown]
